FAERS Safety Report 6797992-2 (Version None)
Quarter: 2010Q2

REPORT INFORMATION
  Report Type: 
  Country: None (occurrence: None)
  Receive Date: 20100623
  Receipt Date: 20100609
  Transmission Date: 20101027
  Serious: Yes (Death)
  Sender: FDA-Public Use
  Company Number: CLOF-1000468

PATIENT
  Age: 45 Year
  Sex: Male

DRUGS (4)
  1. CLOLAR [Suspect]
     Indication: HAEMATOLOGICAL MALIGNANCY
     Dosage: 40 MG/M2, QDX5, INTRAVENOUS
     Route: 042
  2. MELPHALAN HYDROCHLORIDE [Suspect]
     Indication: HAEMATOLOGICAL MALIGNANCY
     Dosage: 140 MG/M2, QDX2,
  3. CAMPATH [Suspect]
     Indication: HAEMATOLOGICAL MALIGNANCY
     Dosage: 20 MG
  4. TACROLIMUS [Concomitant]

REACTIONS (1)
  - RENAL FAILURE [None]
